FAERS Safety Report 4838537-3 (Version None)
Quarter: 2005Q4

REPORT INFORMATION
  Report Type: 
  Country: None (occurrence: None)
  Receive Date: 20051123
  Receipt Date: 20051108
  Transmission Date: 20060501
  Serious: Yes (Other)
  Sender: FDA-Public Use
  Company Number: PHEH2005US05366

PATIENT
  Age: 87 Year
  Sex: Male

DRUGS (1)
  1. VISUDYNE [Suspect]
     Indication: MACULAR DEGENERATION
     Dates: start: 20050118, end: 20050118

REACTIONS (4)
  - BLINDNESS [None]
  - DETACHMENT OF RETINAL PIGMENT EPITHELIUM [None]
  - GENERAL PHYSICAL HEALTH DETERIORATION [None]
  - VISUAL ACUITY REDUCED [None]
